FAERS Safety Report 16828460 (Version 1)
Quarter: 2019Q3

REPORT INFORMATION
  Report Type: Spontaneous
  Country: US (occurrence: US)
  Receive Date: 20190919
  Receipt Date: 20190919
  Transmission Date: 20191005
  Serious: No
  Sender: FDA-Public Use
  Company Number: US-SA-2019SA257382

PATIENT
  Age: 14 Year
  Sex: Female
  Weight: 22.2 kg

DRUGS (30)
  1. HEPARIN [Concomitant]
     Active Substance: HEPARIN SODIUM
     Dosage: 100 UNITS/ML
     Route: 042
     Dates: start: 20190221
  2. ONDANSETRON [Concomitant]
     Active Substance: ONDANSETRON
     Indication: ANAPHYLACTIC REACTION
     Dosage: 2.5 MG, PRN
     Route: 042
     Dates: start: 20190221
  3. LUMIZYME [Suspect]
     Active Substance: ALGLUCOSIDASE ALFA
     Indication: GLYCOGEN STORAGE DISORDER
     Dosage: 1050 MG, QOW
     Route: 042
     Dates: start: 20190109
  4. LUMIZYME [Suspect]
     Active Substance: ALGLUCOSIDASE ALFA
     Indication: GLYCOGEN STORAGE DISORDER
  5. NEURONTIN [Concomitant]
     Active Substance: GABAPENTIN
     Dosage: 5 ML, TID VIA G-TUBE
  6. DIPHENHYDRAMINE. [Concomitant]
     Active Substance: DIPHENHYDRAMINE
     Indication: ANAPHYLACTIC REACTION
     Dosage: 25 MG, PRN
     Route: 042
     Dates: start: 20190221
  7. SODIUM CHLORIDE. [Concomitant]
     Active Substance: SODIUM CHLORIDE
     Dosage: 0.90 %
     Route: 042
     Dates: start: 20190221
  8. STERILE WATER [Concomitant]
     Active Substance: WATER
     Dosage: 1 DF
     Route: 042
     Dates: start: 20190221
  9. BUDESONIDE. [Concomitant]
     Active Substance: BUDESONIDE
     Dosage: 1 DF(AMP); QD
     Dates: start: 20190207
  10. MUCINEX [Concomitant]
     Active Substance: GUAIFENESIN
     Dosage: 5 ML, TID, G-TUBE
     Dates: start: 20190207
  11. MULTI VIT [Concomitant]
     Active Substance: VITAMINS
     Dosage: 9 MG, QD, VIA G-TUBE
  12. FAMOTIDINE. [Concomitant]
     Active Substance: FAMOTIDINE
     Indication: ANAPHYLACTIC REACTION
     Dosage: 25 MG, PRN
     Route: 042
     Dates: start: 20190221
  13. NORMAL SALINE [Concomitant]
     Active Substance: SODIUM CHLORIDE
     Dosage: 0.90 %
     Route: 042
     Dates: start: 20190221
  14. IBUPROFEN. [Concomitant]
     Active Substance: IBUPROFEN
     Dosage: 10 ML, EVERY 6 HOURS, G-TUBE
     Dates: start: 20190207
  15. PAMIDRONATE [Concomitant]
     Active Substance: PAMIDRONATE DISODIUM
     Dosage: 90 MG, EVERY 3 MONTHS
     Route: 042
     Dates: start: 20190207
  16. LEVALBUTEROL [LEVOSALBUTAMOL] [Concomitant]
     Active Substance: LEVALBUTEROL
     Dosage: 1 UNK (INH), HS
     Route: 055
     Dates: start: 20190813
  17. IPRATROPIUM [Concomitant]
     Active Substance: IPRATROPIUM
     Dosage: 1 DF, BID (NEB)
     Dates: start: 20190207
  18. XOPENEX [Concomitant]
     Active Substance: LEVALBUTEROL HYDROCHLORIDE
     Dosage: 1 DF, PRN, EVERY 4 HOURS AS NEEDED
     Route: 055
     Dates: start: 20190207
  19. OXYGEN. [Concomitant]
     Active Substance: OXYGEN
     Dosage: 2 ML/MIN, NC,  PRN
  20. CYCLOBENZAPRINE. [Concomitant]
     Active Substance: CYCLOBENZAPRINE
     Dosage: 1 DF, TID, VIA G-TUBE
  21. IPRATROPIUM/ALBUTEROL [Concomitant]
     Active Substance: ALBUTEROL\IPRATROPIUM
     Dosage: 3 ML, QD
     Dates: start: 20190207
  22. NYSTATIN. [Concomitant]
     Active Substance: NYSTATIN
     Dosage: 1 APP, BID
     Route: 061
     Dates: start: 20190207
  23. PREVACID [Concomitant]
     Active Substance: LANSOPRAZOLE
     Dosage: 1 DF, HS, G-TUBE
     Dates: start: 20190207
  24. METHYLPREDNISOLONE. [Concomitant]
     Active Substance: METHYLPREDNISOLONE
     Indication: ANAPHYLACTIC REACTION
     Dosage: 50 MG, PRN
     Route: 042
     Dates: start: 20190221
  25. EPINEPHRINE. [Concomitant]
     Active Substance: EPINEPHRINE
     Indication: ANAPHYLACTIC REACTION
     Dosage: 0.3 MG, PRN
     Route: 030
     Dates: start: 20190221
  26. LANSOPRAZOLE. [Concomitant]
     Active Substance: LANSOPRAZOLE
     Dosage: 15 MG, QD, G-TUBE
     Dates: start: 20190207
  27. MIRALAX [Concomitant]
     Active Substance: POLYETHYLENE GLYCOL 3350
     Dosage: 1 PACKET, PRN,  G-TUBE
     Dates: start: 20190207
  28. SPIRONOLACTONE. [Concomitant]
     Active Substance: SPIRONOLACTONE
     Dosage: 1 DF (DOSE), QD, VIA G-TUBE
     Dates: start: 20190813
  29. EPANED [Concomitant]
     Active Substance: ENALAPRIL MALEATE
     Dosage: 1 MG, BID, VIA G-UBE
  30. ERYTHROMYCIN ETHYLSUCCINATE AND SULFISOXAZOLE [Concomitant]
     Dosage: 2 DF, QD VIA G-TUBE
     Dates: start: 20190813

REACTIONS (1)
  - Body temperature increased [Unknown]
